FAERS Safety Report 18922634 (Version 1)
Quarter: 2021Q1

REPORT INFORMATION
  Report Type: Report from Study
  Country: DE (occurrence: DE)
  Receive Date: 20210222
  Receipt Date: 20210222
  Transmission Date: 20210420
  Serious: Yes (Hospitalization, Other)
  Sender: FDA-Public Use
  Company Number: DE-TAKEDA-2021TUS008170

PATIENT
  Age: 84 Year
  Sex: Female

DRUGS (5)
  1. COAGULATION FACTOR VIII (PORCINE, RECOMBINANT) [Suspect]
     Active Substance: ANTIHEMOPHILIC FACTOR PORCINE, B-DOMAIN TRUNCATED RECOMBINANT
     Indication: ACQUIRED HAEMOPHILIA
     Dosage: 89 INTERNATIONAL UNIT, BID
     Route: 042
     Dates: start: 20200927, end: 20200927
  2. COAGULATION FACTOR VIII (PORCINE, RECOMBINANT) [Suspect]
     Active Substance: ANTIHEMOPHILIC FACTOR PORCINE, B-DOMAIN TRUNCATED RECOMBINANT
     Indication: ACQUIRED HAEMOPHILIA
     Dosage: 89 INTERNATIONAL UNIT, BID
     Route: 042
     Dates: start: 20200927, end: 20200927
  3. COAGULATION FACTOR VIII (PORCINE, RECOMBINANT) [Suspect]
     Active Substance: ANTIHEMOPHILIC FACTOR PORCINE, B-DOMAIN TRUNCATED RECOMBINANT
     Dosage: UNK
  4. PREDNISOLON [PREDNISOLONE] [Concomitant]
     Active Substance: PREDNISOLONE
     Indication: ACQUIRED HAEMOPHILIA
     Dosage: 30 MILLIGRAM, QD
     Route: 048
     Dates: start: 20201002, end: 20201003
  5. COAGULATION FACTOR VIII (PORCINE, RECOMBINANT) [Suspect]
     Active Substance: ANTIHEMOPHILIC FACTOR PORCINE, B-DOMAIN TRUNCATED RECOMBINANT
     Dosage: UNK

REACTIONS (3)
  - Fall [Recovered/Resolved]
  - Skin laceration [Recovered/Resolved]
  - Contusion [Recovered/Resolved]

NARRATIVE: CASE EVENT DATE: 20201003
